FAERS Safety Report 25548765 (Version 1)
Quarter: 2025Q3

REPORT INFORMATION
  Report Type: Spontaneous
  Country: US (occurrence: None)
  Receive Date: 20250713
  Receipt Date: 20250713
  Transmission Date: 20251021
  Serious: Yes (Other)
  Sender: FDA-CTU
  Company Number: None

PATIENT
  Age: 45 Year
  Sex: Female
  Weight: 81 kg

DRUGS (1)
  1. PRISTIQ EXTENDED-RELEASE [Suspect]
     Active Substance: DESVENLAFAXINE SUCCINATE
     Indication: Depression

REACTIONS (9)
  - Headache [None]
  - Electric shock sensation [None]
  - Impaired driving ability [None]
  - Dizziness [None]
  - Panic attack [None]
  - Dyspnoea [None]
  - Insomnia [None]
  - Migraine [None]
  - Wrong technique in product usage process [None]

NARRATIVE: CASE EVENT DATE: 20250713
